FAERS Safety Report 10647564 (Version 1)
Quarter: 2014Q4

REPORT INFORMATION
  Report Type: Spontaneous
  Country: US (occurrence: US)
  Receive Date: 20141211
  Receipt Date: 20141211
  Transmission Date: 20150529
  Serious: Yes (Other)
  Sender: FDA-Public Use
  Company Number: US-GILEAD-2014-0126408

PATIENT
  Sex: Female

DRUGS (1)
  1. HARVONI [Suspect]
     Active Substance: LEDIPASVIR\SOFOSBUVIR
     Indication: PRODUCT USED FOR UNKNOWN INDICATION
     Dosage: UNK
     Route: 065
     Dates: start: 201411

REACTIONS (14)
  - Chest pain [Recovered/Resolved]
  - Abdominal rigidity [Unknown]
  - Peripheral swelling [Not Recovered/Not Resolved]
  - Abdominal pain [Unknown]
  - Platelet count abnormal [Unknown]
  - Headache [Unknown]
  - Diarrhoea [Recovered/Resolved]
  - Hepatic failure [Unknown]
  - Splenomegaly [Unknown]
  - Bladder pain [Unknown]
  - Fatigue [Unknown]
  - Congenital cystic kidney disease [Unknown]
  - Paraesthesia [Unknown]
  - Vasodilatation [Unknown]

NARRATIVE: CASE EVENT DATE: 20141208
